FAERS Safety Report 6735257-5 (Version None)
Quarter: 2010Q2

REPORT INFORMATION
  Report Type: 
  Country: None (occurrence: None)
  Receive Date: 20100521
  Receipt Date: 20100512
  Transmission Date: 20101027
  Serious: Yes (Other)
  Sender: FDA-Public Use
  Company Number: US-ASTRAZENECA-2010SE21857

PATIENT
  Age: 69 Year
  Sex: Male
  Weight: 73.5 kg

DRUGS (1)
  1. TOPROL-XL [Suspect]
     Route: 048
     Dates: start: 19980101, end: 19980101

REACTIONS (1)
  - CARDIAC ARREST [None]
